FAERS Safety Report 10272642 (Version 1)
Quarter: 2014Q2

REPORT INFORMATION
  Report Type: Spontaneous
  Country: US (occurrence: None)
  Receive Date: 20140627
  Receipt Date: 20140627
  Transmission Date: 20141212
  Serious: No
  Sender: FDA-Public Use
  Company Number: None

PATIENT
  Age: 55 Year
  Sex: Male

DRUGS (1)
  1. CAPECITABINE 500 MG TEVA PHARMACEUTICALS USA INC [Suspect]
     Indication: COLON CANCER
     Route: 048
     Dates: start: 20140422

REACTIONS (3)
  - Deep vein thrombosis [None]
  - Fatigue [None]
  - Pulmonary embolism [None]
